FAERS Safety Report 16932659 (Version 2)
Quarter: 2020Q3

REPORT INFORMATION
  Report Type: Spontaneous
  Country: US (occurrence: US)
  Receive Date: 20191018
  Receipt Date: 20200930
  Transmission Date: 20201102
  Serious: Yes (Hospitalization, Other)
  Sender: FDA-Public Use
  Company Number: US-SUN PHARMACEUTICAL INDUSTRIES LTD-2019R1-223610

PATIENT
  Age: 63 Year
  Sex: Male

DRUGS (5)
  1. PACLITAXEL. [Suspect]
     Active Substance: PACLITAXEL
     Indication: CHEMOTHERAPY
  2. PACLITAXEL. [Suspect]
     Active Substance: PACLITAXEL
     Indication: NON-SMALL CELL LUNG CANCER STAGE IIIB
     Dosage: HAD COMPLETED SIX CYCLES
     Route: 065
  3. CARBOPLATIN. [Suspect]
     Active Substance: CARBOPLATIN
     Indication: CHEMOTHERAPY
  4. DURVALUMAB. [Suspect]
     Active Substance: DURVALUMAB
     Indication: NON-SMALL CELL LUNG CANCER STAGE IIIB
     Dosage: FOUR CYCLES
     Route: 065
  5. CARBOPLATIN. [Suspect]
     Active Substance: CARBOPLATIN
     Indication: NON-SMALL CELL LUNG CANCER STAGE IIIB
     Dosage: HAD COMPLETED SIX CYCLES
     Route: 065

REACTIONS (2)
  - Bronchopulmonary aspergillosis [Recovering/Resolving]
  - Empyema [Recovering/Resolving]
